FAERS Safety Report 6666310-2 (Version None)
Quarter: 2010Q2

REPORT INFORMATION
  Report Type: 
  Country: None (occurrence: None)
  Receive Date: 20100402
  Receipt Date: 20100324
  Transmission Date: 20101027
  Serious: No
  Sender: FDA-Public Use
  Company Number: DE-ELI_LILLY_AND_COMPANY-DE201003006605

PATIENT
  Age: 43 Year
  Sex: Female

DRUGS (1)
  1. ZYPREXA [Suspect]
     Indication: ASPERGER'S DISORDER
     Dosage: 5 MG, UNK
     Route: 048
     Dates: start: 20100318

REACTIONS (5)
  - EMOTIONAL DISORDER [None]
  - EPISTAXIS [None]
  - MICTURITION URGENCY [None]
  - OFF LABEL USE [None]
  - TREMOR [None]
